FAERS Safety Report 20631640 (Version 2)
Quarter: 2022Q2

REPORT INFORMATION
  Report Type: Spontaneous
  Country: ES (occurrence: ES)
  Receive Date: 20220324
  Receipt Date: 20220407
  Transmission Date: 20220721
  Serious: Yes (Hospitalization)
  Sender: FDA-Public Use
  Company Number: ES-TEVA-2022-ES-2018923

PATIENT
  Age: 64 Year
  Sex: Female

DRUGS (3)
  1. OXALIPLATIN [Suspect]
     Active Substance: OXALIPLATIN
     Indication: Colorectal adenocarcinoma
     Dosage: FOLFOX-4 REGIMEN; USING A SUBCUTANEOUS PUMP FOR AMBULATORY ADMINISTRATION, WITH VENOUS ACCESS TO ...
     Route: 058
  2. LEUCOVORIN [Concomitant]
     Active Substance: LEUCOVORIN
     Indication: Colorectal adenocarcinoma
     Dosage: FOLFOX-4 REGIMEN; USING A SUBCUTANEOUS PUMP FOR AMBULATORY ADMINISTRATION, WITH VENOUS ACCESS TO ...
     Route: 058
  3. FLUOROURACIL [Concomitant]
     Active Substance: FLUOROURACIL
     Indication: Colorectal adenocarcinoma
     Dosage: FOLFOX-4 REGIMEN; USING A SUBCUTANEOUS PUMP FOR AMBULATORY ADMINISTRATION, WITH VENOUS ACCESS TO ...
     Route: 058

REACTIONS (7)
  - Administration site extravasation [Recovering/Resolving]
  - Pain [Recovering/Resolving]
  - Oedema [Recovering/Resolving]
  - Pathological dissection [Recovering/Resolving]
  - Inflammation [Recovering/Resolving]
  - Erythema [Recovering/Resolving]
  - Induration [Recovering/Resolving]
